FAERS Safety Report 6656876-0 (Version None)
Quarter: 2010Q1

REPORT INFORMATION
  Report Type: 
  Country: None (occurrence: None)
  Receive Date: 20100329
  Receipt Date: 20100329
  Transmission Date: 20100710
  Serious: Yes (Disabling)
  Sender: FDA-Public Use
  Company Number: None

PATIENT
  Age: 61 Year
  Sex: Female
  Weight: 72.5755 kg

DRUGS (2)
  1. OXYBUTYNIN [Suspect]
     Indication: BLADDER PAIN
     Dosage: TAKE 1 TAB TWICE DAILY PO ONLY ONE PILL
     Route: 048
     Dates: start: 20100323, end: 20100323
  2. OXYBUTYNIN [Suspect]
     Indication: CYSTITIS
     Dosage: TAKE 1 TAB TWICE DAILY PO ONLY ONE PILL
     Route: 048
     Dates: start: 20100323, end: 20100323

REACTIONS (16)
  - ABDOMINAL DISCOMFORT [None]
  - CHEST PAIN [None]
  - COLD SWEAT [None]
  - CYSTITIS [None]
  - DIZZINESS [None]
  - DRY MOUTH [None]
  - DYSPHAGIA [None]
  - DYSPNOEA [None]
  - FEELING ABNORMAL [None]
  - HYPOAESTHESIA [None]
  - HYPOAESTHESIA ORAL [None]
  - MENTAL IMPAIRMENT [None]
  - NASAL DRYNESS [None]
  - PANIC REACTION [None]
  - PARAESTHESIA [None]
  - PYREXIA [None]
